FAERS Safety Report 5606695-9 (Version None)
Quarter: 2008Q1

REPORT INFORMATION
  Report Type: 
  Country: None (occurrence: None)
  Receive Date: 20080129
  Receipt Date: 20070523
  Transmission Date: 20080703
  Serious: Yes (Other)
  Sender: FDA-Public Use
  Company Number: A0653370A

PATIENT

DRUGS (3)
  1. EPIVIR [Suspect]
     Route: 048
  2. KALETRA [Concomitant]
  3. VIREAD [Concomitant]

REACTIONS (1)
  - BLOOD AMYLASE INCREASED [None]
